FAERS Safety Report 9063945 (Version 1)
Quarter: 2013Q1

REPORT INFORMATION
  Report Type: Spontaneous
  Country: US (occurrence: US)
  Receive Date: 20130213
  Receipt Date: 20130213
  Transmission Date: 20140127
  Serious: Yes (Hospitalization, Other)
  Sender: FDA-Public Use
  Company Number: US-CELGENEUS-163-21880-13013307

PATIENT
  Sex: Female

DRUGS (8)
  1. REVLIMID [Suspect]
     Indication: PLASMA CELL MYELOMA
     Dosage: 25 MILLIGRAM
     Route: 048
     Dates: start: 20110508, end: 201109
  2. REVLIMID [Suspect]
     Dosage: 10 MILLIGRAM
     Route: 048
     Dates: start: 20110925
  3. REVLIMID [Suspect]
     Dosage: 25 MILLIGRAM
     Route: 048
     Dates: start: 201205, end: 201212
  4. CYMBALTA [Concomitant]
     Indication: PAIN
     Route: 065
  5. CYMBALTA [Concomitant]
     Indication: HYPOAESTHESIA
  6. HYDROCODONE [Concomitant]
     Indication: PAIN
     Route: 065
  7. HYDROCODONE [Concomitant]
     Indication: HYPOAESTHESIA
  8. DECADRON [Concomitant]
     Indication: PRODUCT USED FOR UNKNOWN INDICATION
     Route: 065

REACTIONS (3)
  - Fracture [Unknown]
  - Plasma cell myeloma [Recovering/Resolving]
  - Drug ineffective [Not Recovered/Not Resolved]
